FAERS Safety Report 23232933 (Version 1)
Quarter: 2023Q4

REPORT INFORMATION
  Report Type: Spontaneous
  Country: ES (occurrence: ES)
  Receive Date: 20231128
  Receipt Date: 20231128
  Transmission Date: 20240110
  Serious: Yes (Death, Other)
  Sender: FDA-Public Use
  Company Number: ES-BIOVITRUM-2023-ES-019163

PATIENT
  Sex: Female

DRUGS (1)
  1. AVATROMBOPAG [Suspect]
     Active Substance: AVATROMBOPAG
     Indication: Product used for unknown indication
     Dosage: UNKNOWN

REACTIONS (1)
  - Brain neoplasm [Fatal]
